FAERS Safety Report 7580783-2 (Version None)
Quarter: 2011Q2

REPORT INFORMATION
  Report Type: 
  Country: None (occurrence: None)
  Receive Date: 20110629
  Receipt Date: 20110627
  Transmission Date: 20111010
  Serious: Yes (Other)
  Sender: FDA-Public Use
  Company Number: US-PFIZER INC-2011143049

PATIENT
  Sex: Female

DRUGS (2)
  1. EFFEXOR [Suspect]
     Indication: DEPRESSION
  2. EFFEXOR [Suspect]
     Indication: ANXIETY
     Dosage: UNK

REACTIONS (1)
  - ROAD TRAFFIC ACCIDENT [None]
